FAERS Safety Report 5678402-5 (Version None)
Quarter: 2008Q1

REPORT INFORMATION
  Report Type: 
  Country: None (occurrence: None)
  Receive Date: 20080320
  Receipt Date: 20080310
  Transmission Date: 20080703
  Serious: Yes (Disabling)
  Sender: FDA-Public Use
  Company Number: OSCN-PR-0607S-0199

PATIENT
  Age: 30 Year
  Sex: Female

DRUGS (2)
  1. OMNISCAN [Suspect]
     Indication: PANCREATITIS CHRONIC
     Dosage: 40 ML (0.30 MMOL/KG), SINGLE DOSE, I.V.
     Route: 042
     Dates: start: 20050101, end: 20050101
  2. ERYTHROPOIETIN (EPOGEN) [Concomitant]

REACTIONS (6)
  - JOINT ANKYLOSIS [None]
  - JOINT CONTRACTURE [None]
  - NEPHROGENIC SYSTEMIC FIBROSIS [None]
  - OSTEOPENIA [None]
  - POLYARTHRITIS [None]
  - WHEELCHAIR USER [None]
